FAERS Safety Report 5073451-2 (Version None)
Quarter: 2006Q3

REPORT INFORMATION
  Report Type: 
  Country: None (occurrence: None)
  Receive Date: 20060803
  Receipt Date: 20060727
  Transmission Date: 20061208
  Serious: Yes (Hospitalization)
  Sender: FDA-Public Use
  Company Number: TPA2006A01201

PATIENT
  Age: 14 Year
  Sex: Female
  Weight: 70.7611 kg

DRUGS (12)
  1. ACTOS [Suspect]
     Indication: GLUCOSE TOLERANCE IMPAIRED
     Dosage: SEE IMAGE
     Route: 048
     Dates: end: 20060201
  2. ACTOS [Suspect]
     Indication: POLYCYSTIC OVARIES
     Dosage: SEE IMAGE
     Route: 048
     Dates: end: 20060201
  3. ACTOS [Suspect]
     Indication: GLUCOSE TOLERANCE IMPAIRED
     Dosage: SEE IMAGE
     Route: 048
     Dates: start: 20010727
  4. ACTOS [Suspect]
     Indication: POLYCYSTIC OVARIES
     Dosage: SEE IMAGE
     Route: 048
     Dates: start: 20010727
  5. ACTOS [Suspect]
     Indication: GLUCOSE TOLERANCE IMPAIRED
     Dosage: SEE IMAGE
     Route: 048
     Dates: start: 20060201
  6. ACTOS [Suspect]
     Indication: POLYCYSTIC OVARIES
     Dosage: SEE IMAGE
     Route: 048
     Dates: start: 20060201
  7. SINGULAIR [Concomitant]
  8. CLARINEX [Concomitant]
  9. RHINOCORT AQUA (BUDESONIDE) [Concomitant]
  10. MIRALAX [Concomitant]
  11. VITAMIN B6 [Concomitant]
  12. MULTIVITAMIN (ERGOCALCIFEROL, ASCORBIC ACID, FOLIC AICD, THIAMINE HYDR [Concomitant]

REACTIONS (7)
  - APPENDICITIS [None]
  - FATIGUE [None]
  - FIBROMATOSIS [None]
  - GASTROINTESTINAL NEOPLASM [None]
  - INITIAL INSOMNIA [None]
  - POLYCYSTIC OVARIES [None]
  - SOMNOLENCE [None]
